FAERS Safety Report 4422864-8 (Version None)
Quarter: 2004Q3

REPORT INFORMATION
  Report Type: 
  Country: None (occurrence: None)
  Receive Date: 20040811
  Receipt Date: 20040730
  Transmission Date: 20050211
  Serious: Yes (Hospitalization)
  Sender: FDA-Public Use
  Company Number: CH-JNJFOC-20040800025

PATIENT
  Sex: Female
  Weight: 58 kg

DRUGS (5)
  1. REMICADE [Suspect]
     Indication: CROHN'S DISEASE
     Route: 042
  2. IMUREK [Concomitant]
     Route: 049
  3. TIBERAL [Concomitant]
     Route: 049
  4. AUGMENTIN '125' [Concomitant]
     Route: 049
  5. AUGMENTIN '125' [Concomitant]
     Route: 049

REACTIONS (5)
  - APATHY [None]
  - BLOOD PRESSURE INCREASED [None]
  - BODY TEMPERATURE INCREASED [None]
  - FATIGUE [None]
  - TACHYCARDIA [None]
